FAERS Safety Report 9074145 (Version 1)
Quarter: 2013Q1

REPORT INFORMATION
  Report Type: Report from Study
  Country: US (occurrence: US)
  Receive Date: 20130129
  Receipt Date: 20130129
  Transmission Date: 20140127
  Serious: No
  Sender: FDA-Public Use
  Company Number: US-ABBOTT-12P-163-0910207-00

PATIENT
  Age: 29 Year
  Sex: Female

DRUGS (3)
  1. HUMIRA 40 MG/0.8 ML PEN [Suspect]
     Indication: PSORIASIS
     Dosage: 2 LOADING DOSES
     Dates: start: 20120219, end: 20120219
  2. HUMIRA 40 MG/0.8 ML PEN [Suspect]
     Dates: start: 20120228
  3. ST IVES [Concomitant]
     Indication: PRODUCT USED FOR UNKNOWN INDICATION
     Dosage: ALL OVER HER BODY
     Dates: start: 20120229, end: 20120229

REACTIONS (5)
  - Injection site erythema [Not Recovered/Not Resolved]
  - Injection site pruritus [Not Recovered/Not Resolved]
  - Wrong technique in drug usage process [Unknown]
  - Rash papular [Not Recovered/Not Resolved]
  - Injection site bruising [Not Recovered/Not Resolved]
